FAERS Safety Report 6544655-4 (Version None)
Quarter: 2010Q1

REPORT INFORMATION
  Report Type: 
  Country: None (occurrence: None)
  Receive Date: 20100121
  Receipt Date: 20100113
  Transmission Date: 20100710
  Serious: Yes (Death, Life-Threatening, Hospitalization)
  Sender: FDA-Public Use
  Company Number: JP-BAYER-200914050BYL

PATIENT
  Age: 59 Year
  Sex: Male
  Weight: 75 kg

DRUGS (9)
  1. NEXAVAR [Suspect]
     Indication: HEPATIC NEOPLASM MALIGNANT
     Dosage: TOTAL DAILY DOSE: 800 MG  UNIT DOSE: 200 MG
     Route: 048
     Dates: start: 20090903, end: 20090904
  2. NEXAVAR [Suspect]
     Dosage: UNIT DOSE: 200 MG
     Route: 048
     Dates: start: 20090905, end: 20091022
  3. URSO 250 [Concomitant]
     Route: 048
     Dates: start: 20090903
  4. RABEPRAZOLE SODIUM [Concomitant]
     Route: 048
     Dates: start: 20090903
  5. LIVACT [Concomitant]
     Route: 048
     Dates: start: 20090903
  6. LENDORMIN D [Concomitant]
     Route: 048
     Dates: start: 20090903
  7. TS 1 [Concomitant]
     Indication: HEPATIC NEOPLASM MALIGNANT NON-RESECTABLE
     Route: 048
     Dates: start: 20090128, end: 20090716
  8. IA-CALL [Concomitant]
     Indication: HEPATIC NEOPLASM MALIGNANT NON-RESECTABLE
     Route: 013
     Dates: start: 20081101
  9. IA-CALL [Concomitant]
     Route: 013
     Dates: start: 20090721

REACTIONS (3)
  - DIARRHOEA [None]
  - HAEMOBILIA [None]
  - HEPATIC FAILURE [None]
